FAERS Safety Report 5910606-6 (Version None)
Quarter: 2008Q4

REPORT INFORMATION
  Report Type: 
  Country: None (occurrence: None)
  Receive Date: 20081007
  Receipt Date: 20081001
  Transmission Date: 20090506
  Serious: Yes (Disabling)
  Sender: FDA-Public Use
  Company Number: B0539905A

PATIENT
  Age: 2 Year
  Sex: Male

DRUGS (6)
  1. FLIXOTIDE [Suspect]
     Indication: PHARYNGITIS
     Dosage: 2SPR PER DAY
     Route: 055
     Dates: start: 20080710
  2. CEFIXIME CHEWABLE [Concomitant]
     Route: 065
  3. SUMAMED [Concomitant]
     Route: 065
  4. OSPEN [Concomitant]
     Route: 065
  5. BRUFEN [Concomitant]
  6. BECONASE [Concomitant]
     Route: 065

REACTIONS (2)
  - ARTHRITIS [None]
  - BONE PAIN [None]
